FAERS Safety Report 9101631 (Version 1)
Quarter: 2013Q1

REPORT INFORMATION
  Report Type: Spontaneous
  Country: US (occurrence: US)
  Receive Date: 20130218
  Receipt Date: 20130218
  Transmission Date: 20140127
  Serious: Yes (Death, Life-Threatening, Other)
  Sender: FDA-Public Use
  Company Number: US-COVIDIEN/TYCO HEALTHCARE/MALLINCKRODT-T201300410

PATIENT
  Age: 9 Year
  Sex: Male

DRUGS (1)
  1. METHADOSE [Suspect]
     Dosage: 50 MG
     Route: 048

REACTIONS (9)
  - Intentional drug misuse [Fatal]
  - Toxicity to various agents [Fatal]
  - Brain death [Fatal]
  - Haemorrhagic infarction [Unknown]
  - Post-anoxic myoclonus [Unknown]
  - Diabetes insipidus [Unknown]
  - Thrombocytopenia [Unknown]
  - Cardiac arrest [Recovered/Resolved]
  - Coma [Unknown]
